FAERS Safety Report 7682976-2 (Version None)
Quarter: 2011Q3

REPORT INFORMATION
  Report Type: 
  Country: None (occurrence: None)
  Receive Date: 20110815
  Receipt Date: 20110803
  Transmission Date: 20111222
  Serious: Yes (Death)
  Sender: FDA-Public Use
  Company Number: DE-ROCHE-796566

PATIENT
  Sex: Male
  Weight: 88 kg

DRUGS (4)
  1. TRIAMTERENE AND HYDROCHLOROTHIAZIDE [Concomitant]
     Route: 048
     Dates: start: 20101112
  2. PEGINTERFERON ALFA-2A [Suspect]
     Route: 058
     Dates: start: 20090618
  3. SUBOXONE [Concomitant]
     Indication: DRUG WITHDRAWAL MAINTENANCE THERAPY
  4. RIBAVIRIN [Suspect]
     Route: 048
     Dates: start: 20090618

REACTIONS (1)
  - DEATH [None]
